FAERS Safety Report 5159519-0 (Version None)
Quarter: 2006Q4

REPORT INFORMATION
  Report Type: 
  Country: None (occurrence: None)
  Receive Date: 20061129
  Receipt Date: 20060718
  Transmission Date: 20070319
  Serious: Yes (Other)
  Sender: FDA-Public Use
  Company Number: PHNU2006DE02558

PATIENT
  Sex: Male

DRUGS (2)
  1. DIOVAN [Suspect]
     Indication: HYPERTENSION
     Dosage: 80MG/DAY
     Route: 048
     Dates: start: 20060101, end: 20060101
  2. DIOVAN [Suspect]
     Dosage: 160MG/DAY
     Dates: start: 20060101, end: 20060101

REACTIONS (6)
  - ATRIAL FIBRILLATION [None]
  - BLOOD PRESSURE INADEQUATELY CONTROLLED [None]
  - FATIGUE [None]
  - HEADACHE [None]
  - NAUSEA [None]
  - PERFORMANCE STATUS DECREASED [None]
